FAERS Safety Report 8396343-X (Version None)
Quarter: 2012Q2

REPORT INFORMATION
  Report Type: 
  Country: None (occurrence: None)
  Receive Date: 20120530
  Receipt Date: 20120518
  Transmission Date: 20120825
  Serious: No
  Sender: FDA-Public Use
  Company Number: US-B.I. PHARMACEUTICALS,INC./RIDGEFIELD-2012-BP-11183BP

PATIENT
  Age: 75 Year
  Sex: Female

DRUGS (4)
  1. SIMVASTASTIN [Concomitant]
     Indication: BLOOD CHOLESTEROL INCREASED
  2. ALTACE [Concomitant]
     Indication: HYPERTENSION
  3. AGGRENOX [Suspect]
     Indication: CEREBROVASCULAR ACCIDENT PROPHYLAXIS
     Route: 048
     Dates: start: 20040101
  4. COZAAR [Concomitant]
     Indication: HYPERTENSION

REACTIONS (1)
  - SCIATICA [None]
